FAERS Safety Report 22135876 (Version 1)
Quarter: 2023Q1

REPORT INFORMATION
  Report Type: Report from Study
  Country: CA (occurrence: CA)
  Receive Date: 20230324
  Receipt Date: 20230324
  Transmission Date: 20230418
  Serious: Yes (Other)
  Sender: FDA-Public Use
  Company Number: CA-GLAXOSMITHKLINE-CA2023043056

PATIENT

DRUGS (4)
  1. MEPOLIZUMAB [Suspect]
     Active Substance: MEPOLIZUMAB
     Indication: Asthma
     Dosage: 100 MG, Z, EVERY 4 WEEKS
     Route: 058
     Dates: start: 20190718
  2. PREDNISONE [Concomitant]
     Active Substance: PREDNISONE
     Indication: Pneumonia
     Dosage: 5 MG, QD
  3. PREDNISONE [Concomitant]
     Active Substance: PREDNISONE
     Indication: Asthma
  4. PREDNISONE [Concomitant]
     Active Substance: PREDNISONE
     Indication: COVID-19

REACTIONS (4)
  - Pneumonia [Recovered/Resolved with Sequelae]
  - Asthma [Unknown]
  - COVID-19 [Recovered/Resolved with Sequelae]
  - Nasopharyngitis [Recovered/Resolved with Sequelae]

NARRATIVE: CASE EVENT DATE: 20221001
